FAERS Safety Report 8761857 (Version 1)
Quarter: 2020Q3

REPORT INFORMATION
  Report Type: Spontaneous
  Country: US (occurrence: None)
  Receive Date: 20120822
  Receipt Date: 20120822
  Transmission Date: 20201104
  Serious: Yes (Hospitalization)
  Sender: FDA-Public Use
  Company Number: 2012AP002401

PATIENT
  Age: 86 Year
  Sex: Female

DRUGS (4)
  1. LISINOPRIL TABLETS [Suspect]
     Active Substance: LISINOPRIL
     Indication: PRODUCT USED FOR UNKNOWN INDICATION
  2. SIMVASTATIN. [Suspect]
     Active Substance: SIMVASTATIN
     Indication: PRODUCT USED FOR UNKNOWN INDICATION
  3. FERROUS SULFATE. [Suspect]
     Active Substance: FERROUS SULFATE
     Indication: PRODUCT USED FOR UNKNOWN INDICATION
  4. ACETYLSALICYLIC ACID [Suspect]
     Active Substance: ASPIRIN
     Indication: PRODUCT USED FOR UNKNOWN INDICATION

REACTIONS (11)
  - Oral administration complication [None]
  - Pharyngeal erythema [None]
  - Oesophagitis [None]
  - Dyspnoea [None]
  - Oesophageal injury [None]
  - Laryngeal oedema [None]
  - Salivary hypersecretion [None]
  - Oesophageal stenosis [None]
  - Weight decreased [None]
  - Product residue present [None]
  - Necrotising oesophagitis [None]
